FAERS Safety Report 21425986 (Version 1)
Quarter: 2022Q4

REPORT INFORMATION
  Report Type: Report from Study
  Country: GB (occurrence: GB)
  Receive Date: 20221008
  Receipt Date: 20221008
  Transmission Date: 20230113
  Serious: Yes (Hospitalization)
  Sender: FDA-Public Use
  Company Number: GB-BRISTOL-MYERS SQUIBB COMPANY-2022-110939

PATIENT
  Age: 84 Year
  Sex: Female

DRUGS (30)
  1. DEXAMETHASONE [Suspect]
     Active Substance: DEXAMETHASONE
     Indication: Product used for unknown indication
     Dosage: EVERY WEEK, UNIT DOSE: 40MG, DURATION: 9 DAYS
     Route: 048
     Dates: start: 20201111, end: 20201119
  2. DEXAMETHASONE [Suspect]
     Active Substance: DEXAMETHASONE
     Dosage: 6 MILLIGRAM DAILY; SPECIFY THE OTHER REASON FOR DOSE ADJUSTMENT: THIS WAS REDUCING EMERGENCY TREATME
     Route: 048
     Dates: start: 20200925, end: 20200925
  3. DEXAMETHASONE [Suspect]
     Active Substance: DEXAMETHASONE
     Dosage: 8 MILLIGRAM DAILY; QD, UNIT DOSE: 8 MG, DURATION: 2 DAYS
     Route: 048
     Dates: start: 20200923, end: 20200924
  4. DEXAMETHASONE [Suspect]
     Active Substance: DEXAMETHASONE
     Dosage: 4 MILLIGRAM DAILY; QD, UNIT DOSE: 4 MG, DURATION: 3 DAYS
     Route: 048
     Dates: start: 20201003, end: 20201005
  5. DEXAMETHASONE [Suspect]
     Active Substance: DEXAMETHASONE
     Dosage: REASON IF DOSE WAS NOT ADMINISTERED.: REST PERIOD, 0 MG, DURATION: 7 DAYS
     Route: 065
     Dates: start: 20201009, end: 20201015
  6. DEXAMETHASONE [Suspect]
     Active Substance: DEXAMETHASONE
     Dosage: 40 MILLIGRAM DAILY; ONCE, SPECIFY THE OTHER REASON FOR DOSE ADJUSTMENT: CHEMO REGIMEN, UNIT DOSE: 40
     Route: 048
     Dates: start: 20201023, end: 20201023
  7. DEXAMETHASONE [Suspect]
     Active Substance: DEXAMETHASONE
     Dosage: SPECIFY THE OTHER REASON WHY DOSE WAS NOT ADMINISTERED.: CYCLE TREATMENT WAS DELAYED AS UNFORTUNATEL
     Route: 065
     Dates: start: 20201203, end: 20201210
  8. DEXAMETHASONE [Suspect]
     Active Substance: DEXAMETHASONE
     Dosage: EVERY WEEK, UNIT DOSE: 40MG, DURATION: 21 DAYS
     Route: 048
     Dates: start: 20201211, end: 20201231
  9. DEXAMETHASONE [Suspect]
     Active Substance: DEXAMETHASONE
     Dosage: BID, UNIT DOSE: 8MG, 1 IN 2 DAYS, DURATION: 7 DAYS
     Route: 048
     Dates: start: 20200910, end: 20200916
  10. DEXAMETHASONE [Suspect]
     Active Substance: DEXAMETHASONE
     Dosage: 20 MILLIGRAM DAILY; DOSING: ONCE, UNIT DOSE: 20MG, DURATION: 1 DAYS
     Route: 048
     Dates: start: 20200926, end: 20200926
  11. DEXAMETHASONE [Suspect]
     Active Substance: DEXAMETHASONE
     Dosage: 0 MG, DURATION: 7 DAYS
     Route: 065
     Dates: start: 20201016, end: 20201022
  12. DEXAMETHASONE [Suspect]
     Active Substance: DEXAMETHASONE
     Dosage: 20 MILLIGRAM DAILY; ONCE, UNIT DOSE: 20MG, DURATION: 1 DAYS
     Route: 048
     Dates: start: 20201003, end: 20201003
  13. DEXAMETHASONE [Suspect]
     Active Substance: DEXAMETHASONE
     Dosage: 12 MILLIGRAM DAILY; SPECIFY THE OTHER REASON FOR DOSE ADJUSTMENT: THIS WAS REDUCING EMERGENCY TREATM
     Route: 048
     Dates: start: 20200917, end: 20200922
  14. DEXAMETHASONE [Suspect]
     Active Substance: DEXAMETHASONE
     Dosage: 2 MILLIGRAM DAILY; QD, UNIT DOSE: 2 MG, DURATION: 3 DAYS
     Route: 048
     Dates: start: 20201006, end: 20201008
  15. DEXAMETHASONE [Suspect]
     Active Substance: DEXAMETHASONE
     Dosage: 6 MILLIGRAM DAILY; QD, SPECIFY THE OTHER REASON FOR DOSE ADJUSTMENT: THIS WAS REDUCING DOSE OF EMERG
     Route: 048
     Dates: start: 20200927, end: 20200927
  16. DEXAMETHASONE [Suspect]
     Active Substance: DEXAMETHASONE
     Dosage: SPECIFY THE OTHER REASON FOR DOSE ADJUSTMENT: PART OF CHEMO REGIMEN, UNIT DOSE: 20MG, DURATION: 5 DA
     Route: 048
     Dates: start: 20200928, end: 20201002
  17. DEXAMETHASONE [Suspect]
     Active Substance: DEXAMETHASONE
     Dosage: 0 MG, DURATION: 1 DAYS
     Route: 065
     Dates: start: 20201126, end: 20201126
  18. REVLIMID [Suspect]
     Active Substance: LENALIDOMIDE
     Indication: Product used for unknown indication
     Dosage: 0 MG, DURATION: 7 DAYS
     Route: 065
     Dates: start: 20201119, end: 20201125
  19. REVLIMID [Suspect]
     Active Substance: LENALIDOMIDE
     Dosage: 0 MG, DURATION: 5 DAYS
     Route: 048
     Dates: start: 20201026, end: 20201030
  20. REVLIMID [Suspect]
     Active Substance: LENALIDOMIDE
     Dosage: 25 MILLIGRAM DAILY; FREQUENCY: QD, UNIT DOSE: 25 MG, DURATION: 21 DAYS
     Route: 048
     Dates: start: 20200918, end: 20201008
  21. REVLIMID [Suspect]
     Active Substance: LENALIDOMIDE
     Dosage: 0 MG, DURATION: 7 DAYS
     Route: 065
     Dates: start: 20201016, end: 20201022
  22. REVLIMID [Suspect]
     Active Substance: LENALIDOMIDE
     Dosage: REASON IF DOSE WAS NOT ADMINISTERED.: REST PERIOD, 0 MG, DURATION: 7 DAYS
     Route: 065
     Dates: start: 20201126, end: 20201202
  23. REVLIMID [Suspect]
     Active Substance: LENALIDOMIDE
     Dosage: 25 MILLIGRAM DAILY; QD, UNIT DOSE: 25MG, DURATION: 3 DAYS
     Route: 048
     Dates: start: 20201023, end: 20201025
  24. REVLIMID [Suspect]
     Active Substance: LENALIDOMIDE
     Dosage: 25 MILLIGRAM DAILY; QD, UNIT DOSE: 25MG, DURATION: 3 DAYS
     Route: 048
     Dates: start: 20201031, end: 20201102
  25. REVLIMID [Suspect]
     Active Substance: LENALIDOMIDE
     Dosage: 0 MG, SPECIFY THE OTHER REASON WHY DOSE WAS NOT ADMINISTERED.: DELAYED TREATMENT AS UNFORTUNATELY BL
     Route: 065
     Dates: start: 20201203, end: 20201210
  26. REVLIMID [Suspect]
     Active Substance: LENALIDOMIDE
     Dosage: 0 MG, REASON IF DOSE WAS NOT ADMINISTERED.: REST PERIOD, DURATION: 7 DAYS
     Route: 065
     Dates: start: 20201009, end: 20201015
  27. REVLIMID [Suspect]
     Active Substance: LENALIDOMIDE
     Dosage: REASON IF DOSE WAS NOT ADMINISTERED.: REST PERIOD, 0 MG, DURATION: 7 DAYS
     Route: 065
     Dates: start: 20210101, end: 20210107
  28. REVLIMID [Suspect]
     Active Substance: LENALIDOMIDE
     Dosage: 0 MG, DURATION: 8 DAYS
     Route: 048
     Dates: start: 20201103, end: 20201110
  29. REVLIMID [Suspect]
     Active Substance: LENALIDOMIDE
     Dosage: 25 MILLIGRAM DAILY; QD, UNIT DOSE: 25MG, DURATION: 8 DAYS
     Route: 048
     Dates: start: 20201111, end: 20201118
  30. REVLIMID [Suspect]
     Active Substance: LENALIDOMIDE
     Dosage: 25 MILLIGRAM DAILY; QD, UNIT DOSE: 25MG, DURATION: 21 DAYS
     Route: 048
     Dates: start: 20201211, end: 20201231

REACTIONS (1)
  - Pyrexia [Recovered/Resolved]

NARRATIVE: CASE EVENT DATE: 20220822
